FAERS Safety Report 12463604 (Version 1)
Quarter: 2016Q2

REPORT INFORMATION
  Report Type: Spontaneous
  Country: US (occurrence: None)
  Receive Date: 20160613
  Receipt Date: 20160613
  Transmission Date: 20160815
  Serious: No
  Sender: FDA-Public Use
  Company Number: None

PATIENT
  Age: 57 Year
  Sex: Male

DRUGS (6)
  1. SPRYCEL [Suspect]
     Active Substance: DASATINIB
     Indication: MYELOID LEUKAEMIA
     Route: 048
     Dates: start: 201508
  2. DULOXETINE. [Concomitant]
     Active Substance: DULOXETINE
  3. SAW PALMETTO [Concomitant]
     Active Substance: SAW PALMETTO
  4. COQ10 [Concomitant]
     Active Substance: UBIDECARENONE
  5. SIMVASTATIN. [Concomitant]
     Active Substance: SIMVASTATIN
  6. MULTIVITAMIN [Concomitant]
     Active Substance: VITAMINS

REACTIONS (5)
  - Fatigue [None]
  - Impaired healing [None]
  - Pain [None]
  - Dysgeusia [None]
  - Acne [None]

NARRATIVE: CASE EVENT DATE: 201605
